FAERS Safety Report 9827187 (Version 1)
Quarter: 2014Q1

REPORT INFORMATION
  Report Type: Spontaneous
  Country: CA (occurrence: CA)
  Receive Date: 20140117
  Receipt Date: 20140117
  Transmission Date: 20141002
  Serious: Yes (Disabling)
  Sender: FDA-Public Use
  Company Number: CA-009507513-1401CAN005496

PATIENT
  Age: 83 Year
  Sex: Female

DRUGS (36)
  1. NITRO-DUR [Suspect]
     Indication: ANGINA PECTORIS
     Dosage: 0.4 MG PATCH, 2 ON AT 9 AM AND OFF AT 10 PM, ROTATING SITE
     Route: 065
  2. NITRO-DUR [Suspect]
     Dosage: SINGLE 0.4 MICROGRAM PATCH ON FOR 12 H, OFF FOR 12 H
     Route: 065
  3. METOPROLOL [Suspect]
     Indication: CORONARY ARTERY DISEASE
     Dosage: HALF A 50 MG TABLET TWICE DAILY
     Route: 048
  4. METOPROLOL [Suspect]
     Indication: CORONARY ARTERY BYPASS
     Dosage: 25 MG, QD
     Route: 048
  5. METOPROLOL [Suspect]
     Dosage: 12.5 MG, BID
     Route: 048
  6. AMLODIPINE [Suspect]
     Indication: HYPERTENSION
     Dosage: HALF A 5 MG TABLET TWICE DAILY
     Route: 048
  7. AMLODIPINE [Suspect]
     Dosage: 2.5 MG, QD
     Route: 048
  8. FUROSEMIDE [Suspect]
     Dosage: 40 MG EVERY MORNING
     Route: 048
  9. FUROSEMIDE [Suspect]
     Dosage: 20 MG/DAILY FOR 1 WEEK
     Route: 048
  10. ESCITALOPRAM [Suspect]
     Indication: DEPRESSION
     Dosage: 10 MG, EVERY MORNING
     Route: 065
  11. ESCITALOPRAM [Suspect]
     Indication: ANXIETY
  12. ZOPICLONE [Suspect]
     Indication: INSOMNIA
     Dosage: 5 MG AT BEDTIME
     Route: 065
  13. ZOPICLONE [Suspect]
     Dosage: 2.5 MG,EVERY NIGHT FOR 3 WEEKS
     Route: 065
  14. OXAZEPAM [Suspect]
     Indication: ANXIETY
     Dosage: 2, 10 MG AT BEDTIME
     Route: 048
  15. OXAZEPAM [Suspect]
     Dosage: 15 MG, EVERY NIGHT FOR 2}3 WEEKS
     Route: 048
  16. OXAZEPAM [Suspect]
     Dosage: 10 MG, EVERY NIGHT FOR 2}3 WEEKS
     Route: 048
  17. OXAZEPAM [Suspect]
     Dosage: 5 MG, EVERY NIGHT FOR 2}3 WEEKS
     Route: 048
  18. OXAZEPAM [Suspect]
     Dosage: 5 MG, EVERY OTHER DAY OR AS NEEDED NUTIL ABLE STOP
     Route: 048
  19. RAMIPRIL [Concomitant]
     Indication: HYPERTENSION
     Dosage: 5 MG, EVERY MORNING
     Route: 065
  20. ATORVASTATIN [Concomitant]
     Indication: CORONARY ARTERY DISEASE
     Dosage: 80 MG, AT BEDTIME
  21. ATORVASTATIN [Concomitant]
     Indication: CORONARY ARTERY BYPASS
  22. ATORVASTATIN [Concomitant]
     Indication: CEREBROVASCULAR ACCIDENT
  23. VITAMIN D (UNSPECIFIED) [Concomitant]
     Indication: OSTEOPOROSIS
     Dosage: 1000 IU, QD
     Route: 065
  24. VITAMIN D (UNSPECIFIED) [Concomitant]
     Dosage: 3000 IU, QD
     Route: 065
  25. CLOPIDOGREL [Concomitant]
     Indication: CORONARY ARTERY DISEASE
     Dosage: 75 MG, EVERY MORNING
     Route: 065
  26. CLOPIDOGREL [Concomitant]
     Indication: CORONARY ARTERY BYPASS
  27. CLOPIDOGREL [Concomitant]
     Indication: CEREBROVASCULAR ACCIDENT
  28. HYDROXYCHLOROQUINE SULFATE [Concomitant]
     Indication: RHEUMATOID ARTHRITIS
     Dosage: 200 MG, AT SUPPER
     Route: 065
  29. PANTOPRAZOLE [Concomitant]
     Indication: NAUSEA
     Dosage: 40 MG, EVERY MORNING
     Route: 065
  30. PANTOPRAZOLE [Concomitant]
     Dosage: 40 MG, QD
     Route: 065
  31. POLYETHYLENE GLYCOL [Concomitant]
     Indication: DRY EYE
     Dosage: EYE DROPS AS NEEDED
     Route: 065
  32. ACETAMINOPHEN (+) CODEINE PHOSPHATE [Concomitant]
     Indication: PAIN
     Dosage: 30 MG, BID AS NEEDED
     Route: 065
  33. ACETAMINOPHEN [Concomitant]
     Indication: PAIN
     Dosage: 500 MG, 4 TIMES A DAY
     Route: 048
  34. ACETAMINOPHEN [Concomitant]
     Dosage: 1000 MG, UNK
  35. CODEINE [Concomitant]
     Dosage: 30 MG, 3 TIMES DAILY AS NEEDED
     Route: 065
  36. CODEINE [Concomitant]
     Dosage: 30 MG, 3 TIMES DAILY REGULARLY

REACTIONS (3)
  - Fall [Recovering/Resolving]
  - Orthostatic hypotension [Unknown]
  - Dizziness [Recovered/Resolved]
